FAERS Safety Report 8823827 (Version 2)
Quarter: 2012Q4

REPORT INFORMATION
  Report Type: Report from Study
  Country: US (occurrence: US)
  Receive Date: 20121003
  Receipt Date: 20121008
  Transmission Date: 20130627
  Serious: Yes (Other)
  Sender: FDA-Public Use
  Company Number: US-ABBOTT-12P-163-0989596-00

PATIENT
  Age: 37 Year
  Sex: Female

DRUGS (2)
  1. KALETRA [Suspect]
     Indication: ANTIVIRAL TREATMENT
     Dosage: 4 tab/caps daily; not taken at conception
     Route: 048
     Dates: start: 20120829
  2. COMBIVIR [Suspect]
     Indication: ANTIVIRAL TREATMENT
     Dosage: 2 tab/caps daily; not taken at conception
     Route: 048
     Dates: start: 20120829

REACTIONS (1)
  - Abortion spontaneous [Unknown]
